FAERS Safety Report 7109806-1 (Version None)
Quarter: 2010Q4

REPORT INFORMATION
  Report Type: 
  Country: None (occurrence: None)
  Receive Date: 20101116
  Receipt Date: 20101116
  Transmission Date: 20110411
  Serious: Yes (Hospitalization)
  Sender: FDA-Public Use
  Company Number: None

PATIENT
  Sex: Female
  Weight: 52.1637 kg

DRUGS (5)
  1. OXALIPLATIN [Suspect]
     Indication: RECTAL CANCER
     Dosage: 128 MG EVERY 2 WKS IV
     Route: 042
     Dates: start: 20101016, end: 20101029
  2. FLUOROURACIL [Suspect]
     Indication: RECTAL CANCER
     Dosage: 60 MG IVP 2X DAYS Q 2 WKS IV
     Route: 042
     Dates: start: 20101016, end: 20101018
  3. FLUOROURACIL [Suspect]
     Indication: RECTAL CANCER
     Dosage: 1804 MG / DAY 2X DAYS Q 2 WKS IV
     Route: 042
     Dates: start: 20101029, end: 20101030
  4. COMPAZINE [Suspect]
     Indication: PROPHYLAXIS OF NAUSEA AND VOMITING
     Dosage: 10 MG PRN NAUSEA PO
     Route: 048
  5. MORPHINE [Suspect]
     Indication: PAIN
     Dosage: 2 TSP Q 4HRS PRN PO
     Route: 048

REACTIONS (7)
  - ALANINE AMINOTRANSFERASE INCREASED [None]
  - ASPARTATE AMINOTRANSFERASE INCREASED [None]
  - DIARRHOEA [None]
  - DYSPNOEA [None]
  - HYPOKALAEMIA [None]
  - ORAL CANDIDIASIS [None]
  - RASH MACULO-PAPULAR [None]
